FAERS Safety Report 9371951 (Version 1)
Quarter: 2013Q2

REPORT INFORMATION
  Report Type: Spontaneous
  Country: US (occurrence: US)
  Receive Date: 20130627
  Receipt Date: 20130627
  Transmission Date: 20140414
  Serious: Yes (Other)
  Sender: FDA-Public Use
  Company Number: US-PFIZER INC-2013187841

PATIENT
  Age: 45 Year
  Sex: Female
  Weight: 59.9 kg

DRUGS (8)
  1. GENOTROPIN [Suspect]
     Indication: HYPOPITUITARISM
     Dosage: 0.2 MG, 7 DAYS PER WEEK
     Route: 058
     Dates: start: 2009, end: 2009
  2. HYDROCORT [Concomitant]
     Dosage: 5 MG, UNK
  3. FLUDROCORTISONE [Concomitant]
     Dosage: 0.1 MG, UNK
  4. TIROSINT [Concomitant]
     Dosage: 100 UG, UNK
  5. DHEA [Concomitant]
     Dosage: 10 MG, UNK
  6. FOLIC ACID [Concomitant]
     Dosage: UNK
  7. AMBIEN [Concomitant]
     Dosage: 30 MG, UNK
  8. ESTROGEL [Concomitant]
     Dosage: UNK

REACTIONS (1)
  - Adrenal insufficiency [Unknown]
